FAERS Safety Report 21074451 (Version 2)
Quarter: 2022Q3

REPORT INFORMATION
  Report Type: Spontaneous
  Country: US (occurrence: US)
  Receive Date: 20220713
  Receipt Date: 20220909
  Transmission Date: 20221027
  Serious: Yes (Other)
  Sender: FDA-Public Use
  Company Number: US-BRISTOL-MYERS SQUIBB COMPANY-2022-070373

PATIENT
  Age: 43 Year
  Sex: Female
  Weight: 107.5 kg

DRUGS (2)
  1. POMALYST [Suspect]
     Active Substance: POMALIDOMIDE
     Indication: Plasma cell myeloma
     Dosage: DAILY DAYS 1-21 EVERY 28 DAYS
     Route: 048
     Dates: start: 20210923
  2. POMALYST [Suspect]
     Active Substance: POMALIDOMIDE
     Route: 048
     Dates: start: 20220124

REACTIONS (4)
  - Plasma cell myeloma [Unknown]
  - Drug ineffective [Unknown]
  - Skin infection [Unknown]
  - Neutropenia [Unknown]
